FAERS Safety Report 10022307 (Version 2)
Quarter: 2014Q2

REPORT INFORMATION
  Report Type: Spontaneous
  Country: GB (occurrence: GB)
  Receive Date: 20140319
  Receipt Date: 20140527
  Transmission Date: 20141212
  Serious: Yes (Hospitalization)
  Sender: FDA-Public Use
  Company Number: GB-ACTAVIS-2014-04877

PATIENT
  Age: 58 Year
  Sex: Male

DRUGS (1)
  1. DONEPEZIL (UNKNOWN) [Suspect]
     Indication: DEMENTIA
     Dosage: 10 MG, DAILY
     Route: 048
     Dates: start: 201308, end: 201310

REACTIONS (1)
  - Generalised tonic-clonic seizure [Recovered/Resolved]
